FAERS Safety Report 9162861 (Version 1)
Quarter: 2013Q1

REPORT INFORMATION
  Report Type: Spontaneous
  Country: GB (occurrence: None)
  Receive Date: 20130213
  Receipt Date: 20130213
  Transmission Date: 20140127
  Serious: Yes (Other)
  Sender: FDA-Public Use
  Company Number: GER/UKI/13/0027826

PATIENT
  Age: 27 Year
  Sex: Female

DRUGS (2)
  1. FEXOFENADINE [Suspect]
     Indication: SEASONAL ALLERGY
     Route: 048
  2. LYMECYCLINE (LYMECYCLINE) [Concomitant]

REACTIONS (1)
  - Depressed mood [None]
